FAERS Safety Report 5529364-2 (Version None)
Quarter: 2007Q4

REPORT INFORMATION
  Report Type: 
  Country: None (occurrence: None)
  Receive Date: 20071129
  Receipt Date: 20071127
  Transmission Date: 20080405
  Serious: Yes (Death)
  Sender: FDA-Public Use
  Company Number: A0696047A

PATIENT
  Age: 42 Year
  Sex: Female

DRUGS (2)
  1. WELLBUTRIN SR [Suspect]
     Indication: DEPRESSION
     Dosage: 150MG UNKNOWN
     Route: 048
  2. BENICAR [Concomitant]

REACTIONS (1)
  - DEATH [None]
